FAERS Safety Report 19466685 (Version 1)
Quarter: 2021Q2

REPORT INFORMATION
  Report Type: Spontaneous
  Country: GB (occurrence: GB)
  Receive Date: 20210628
  Receipt Date: 20210628
  Transmission Date: 20210717
  Serious: Yes (Other)
  Sender: FDA-Public Use
  Company Number: GB-LEO PHARMA-337158

PATIENT
  Age: 39 Year
  Sex: Female
  Weight: 56 kg

DRUGS (3)
  1. PROTOPIC [Suspect]
     Active Substance: TACROLIMUS
     Indication: ECZEMA
     Dosage: APPLY TWICE DAILY TO PATCHES OF ECZEMA ON FACE THEN REDUCE TO TWICE WEEKLY AS MAINTENANCE. 0.1% 30G
     Route: 061
     Dates: start: 20200801, end: 20210410
  2. ELOCON [Suspect]
     Active Substance: MOMETASONE FUROATE
     Indication: ECZEMA
     Dosage: APPLY DAILY TO PATCHES OF ECZEMA ON BODY. 0.1% 100G
     Route: 061
     Dates: start: 20200801, end: 20210410
  3. PROTOPIC [Suspect]
     Active Substance: TACROLIMUS
     Indication: ECZEMA
     Dosage: APPLY TWICE DAILY TO PATCHES OF ECZEMA ON FACE THEN REDUCE TO TWICE WEEKLY AS MAINTENANCE. 0.1% 30G
     Route: 061
     Dates: start: 20200801, end: 20210410

REACTIONS (5)
  - Urticaria [Unknown]
  - Skin exfoliation [Unknown]
  - Eczema [Unknown]
  - Dry skin [Not Recovered/Not Resolved]
  - Erythema [Not Recovered/Not Resolved]

NARRATIVE: CASE EVENT DATE: 20210401
